FAERS Safety Report 4943471-4 (Version None)
Quarter: 2006Q1

REPORT INFORMATION
  Report Type: 
  Country: None (occurrence: None)
  Receive Date: 20060314
  Receipt Date: 20060227
  Transmission Date: 20060701
  Serious: Yes (Hospitalization)
  Sender: FDA-Public Use
  Company Number: CA-AMGEN-US169075

PATIENT
  Sex: Male

DRUGS (16)
  1. ENBREL [Suspect]
     Indication: RHEUMATOID ARTHRITIS
     Route: 058
     Dates: start: 20040929, end: 20060215
  2. GRAVOL TAB [Concomitant]
     Route: 042
  3. PLAQUENIL [Concomitant]
     Route: 048
  4. CELEBREX [Concomitant]
     Route: 048
  5. SEROQUEL [Concomitant]
     Route: 048
  6. NORVASC [Concomitant]
     Route: 048
  7. CALCITRIOL [Concomitant]
     Route: 048
  8. ELTROXIN [Concomitant]
     Route: 048
  9. METFORMIN [Concomitant]
     Route: 048
  10. GLYBURIDE [Concomitant]
     Route: 048
  11. HUMULIN R [Concomitant]
     Route: 058
  12. VENTOLIN [Concomitant]
     Route: 050
  13. PREDNISONE [Concomitant]
     Route: 048
  14. UNIPHYL [Concomitant]
  15. PANTOPRAZOLE SODIUM [Concomitant]
  16. PLAVIX [Concomitant]

REACTIONS (4)
  - AORTIC VALVE STENOSIS [None]
  - CARDIOMYOPATHY [None]
  - CONDITION AGGRAVATED [None]
  - PULMONARY FIBROSIS [None]
